FAERS Safety Report 6500025-6 (Version None)
Quarter: 2009Q4

REPORT INFORMATION
  Report Type: 
  Country: None (occurrence: None)
  Receive Date: 20091216
  Receipt Date: 20091123
  Transmission Date: 20100525
  Serious: Yes (Life-Threatening, Hospitalization)
  Sender: FDA-Public Use
  Company Number: FR-TYCO HEALTHCARE/MALLINCKRODT-T200901762

PATIENT
  Sex: Female
  Weight: 60 kg

DRUGS (1)
  1. OPTIJECT [Suspect]
     Indication: COMPUTERISED TOMOGRAM
     Dosage: 130 ML, SINGLE
     Route: 042
     Dates: start: 20090826, end: 20090826

REACTIONS (5)
  - ACIDOSIS [None]
  - ANAPHYLACTIC SHOCK [None]
  - DUODENITIS [None]
  - ISCHAEMIC HEPATITIS [None]
  - LOSS OF CONSCIOUSNESS [None]
